FAERS Safety Report 13114242 (Version 1)
Quarter: 2017Q1

REPORT INFORMATION
  Report Type: Spontaneous
  Country: US (occurrence: US)
  Receive Date: 20170113
  Receipt Date: 20170113
  Transmission Date: 20170428
  Serious: No
  Sender: FDA-Public Use
  Company Number: US-PFIZER INC-2017015108

PATIENT
  Age: 51 Year
  Sex: Male
  Weight: 113 kg

DRUGS (2)
  1. CHANTIX [Suspect]
     Active Substance: VARENICLINE TARTRATE
     Indication: SMOKING CESSATION THERAPY
     Dosage: 1 MG, 2X/DAY
     Route: 048
     Dates: start: 20170101, end: 20170110
  2. AMITRIPTYLINE [Concomitant]
     Active Substance: AMITRIPTYLINE
     Indication: ANTIDEPRESSANT THERAPY
     Dosage: 25 MG, 1X/DAY
     Dates: start: 20170104

REACTIONS (2)
  - Drug ineffective [Unknown]
  - Abnormal dreams [Recovered/Resolved]

NARRATIVE: CASE EVENT DATE: 201701
